FAERS Safety Report 19187910 (Version 2)
Quarter: 2021Q2

REPORT INFORMATION
  Report Type: Spontaneous
  Country: US (occurrence: US)
  Receive Date: 20210428
  Receipt Date: 20210521
  Transmission Date: 20210717
  Serious: Yes (Other)
  Sender: FDA-Public Use
  Company Number: US-ASTRAZENECA-2021A339314

PATIENT
  Age: 21668 Day
  Sex: Female
  Weight: 68.3 kg

DRUGS (6)
  1. LYNPARZA [Suspect]
     Active Substance: OLAPARIB
     Indication: OVARIAN CANCER STAGE III
     Dosage: 250.0MG UNKNOWN
     Route: 048
     Dates: start: 20201020, end: 20201110
  2. LYNPARZA [Suspect]
     Active Substance: OLAPARIB
     Indication: OVARIAN CANCER STAGE III
     Dosage: 250.0MG UNKNOWN
     Route: 048
     Dates: start: 20200820, end: 20201014
  3. LYNPARZA [Suspect]
     Active Substance: OLAPARIB
     Indication: OVARIAN CANCER STAGE III
     Dosage: 250.0MG UNKNOWN
     Route: 048
     Dates: start: 20200715
  4. LYNPARZA [Suspect]
     Active Substance: OLAPARIB
     Indication: OVARIAN CANCER STAGE III
     Dosage: 300.0MG UNKNOWN
     Route: 048
     Dates: start: 20200715, end: 20200811
  5. LYNPARZA [Suspect]
     Active Substance: OLAPARIB
     Indication: OVARIAN CANCER STAGE III
     Dosage: 200.0MG UNKNOWN
     Route: 048
     Dates: start: 20201128
  6. VITAMIN B COMPLEX [Concomitant]
     Active Substance: CYANOCOBALAMIN\DEXPANTHENOL\NIACINAMIDE\PYRIDOXINE HYDROCHLORIDE\RIBOFLAVIN 5^-PHOSPHATE SODIUM\THIAMINE HYDROCHLORIDE\VITAMIN B COMPLEX
     Indication: HAEMOGLOBIN ABNORMAL
     Dosage: UNKNOWN
     Route: 065

REACTIONS (6)
  - Product administration error [Unknown]
  - Haemoglobin decreased [Recovered/Resolved]
  - Product dose omission issue [Unknown]
  - Adverse event [Unknown]
  - Alopecia [Not Recovered/Not Resolved]
  - Thrombocytopenia [Recovered/Resolved]

NARRATIVE: CASE EVENT DATE: 20200811
